FAERS Safety Report 12385411 (Version 1)
Quarter: 2016Q2

REPORT INFORMATION
  Report Type: Spontaneous
  Country: BR (occurrence: BR)
  Receive Date: 20160519
  Receipt Date: 20160519
  Transmission Date: 20160815
  Serious: Yes (Other)
  Sender: FDA-Public Use
  Company Number: BR-SA-2015SA119586

PATIENT
  Age: 30 Year
  Sex: Female
  Weight: 64 kg

DRUGS (2)
  1. CLEXANE [Suspect]
     Active Substance: ENOXAPARIN SODIUM
     Indication: PROTEIN TOTAL ABNORMAL
     Dosage: STOP DATE: AFTER THE ABORTION
     Route: 058
     Dates: start: 20150724
  2. DUPHASTON [Concomitant]
     Active Substance: DYDROGESTERONE
     Indication: PROGESTERONE
     Dosage: 1 IN THE MORNING, 1 IN AFTERNOON AND 1 IN THE NIGHT.
     Route: 048
     Dates: start: 20150724

REACTIONS (2)
  - Exposure during pregnancy [Unknown]
  - Abortion [Unknown]

NARRATIVE: CASE EVENT DATE: 20150724
